FAERS Safety Report 5675977-7 (Version None)
Quarter: 2008Q1

REPORT INFORMATION
  Report Type: 
  Country: None (occurrence: None)
  Receive Date: 20080318
  Receipt Date: 20080304
  Transmission Date: 20080703
  Serious: Yes (Hospitalization)
  Sender: FDA-Public Use
  Company Number: 20084693

PATIENT
  Sex: Male

DRUGS (1)
  1. LIORESAL [Suspect]
     Indication: MUSCLE SPASTICITY
     Dosage: 475 MCG DAILY INTRATHECAL
     Route: 037

REACTIONS (9)
  - ASTHENIA [None]
  - CATHETER RELATED COMPLICATION [None]
  - CYSTITIS [None]
  - FATIGUE [None]
  - FEELING ABNORMAL [None]
  - OVERDOSE [None]
  - PNEUMONIA ASPIRATION [None]
  - URINARY RETENTION [None]
  - VOMITING [None]
